FAERS Safety Report 12463602 (Version 3)
Quarter: 2016Q2

REPORT INFORMATION
  Report Type: Spontaneous
  Country: FR (occurrence: FR)
  Receive Date: 20160614
  Receipt Date: 20160623
  Transmission Date: 20160815
  Serious: Yes (Other)
  Sender: FDA-Public Use
  Company Number: FR-ASTRAZENECA-2016SE61640

PATIENT
  Age: 948 Month
  Sex: Female

DRUGS (7)
  1. CRESTOR [Suspect]
     Active Substance: ROSUVASTATIN CALCIUM
     Indication: HYPERCHOLESTEROLAEMIA
     Route: 048
     Dates: start: 20110616, end: 20150901
  2. CORTANCYL [Concomitant]
     Active Substance: PREDNISONE
     Route: 048
     Dates: start: 201502
  3. NOCTAMIDE [Concomitant]
     Active Substance: LORMETAZEPAM
     Route: 048
  4. ZINNAT [Concomitant]
     Active Substance: CEFUROXIME AXETIL
     Route: 048
  5. ZALDIAR [Concomitant]
     Active Substance: ACETAMINOPHEN\TRAMADOL HYDROCHLORIDE
     Route: 048
  6. CORTANCYL [Concomitant]
     Active Substance: PREDNISONE
     Route: 048
  7. INEXIUM [Concomitant]
     Active Substance: ESOMEPRAZOLE
     Route: 048

REACTIONS (9)
  - Bronchiectasis [Unknown]
  - Tuberculosis [Unknown]
  - Weight increased [Unknown]
  - Interstitial lung disease [Recovered/Resolved]
  - Bronchitis [Unknown]
  - Pseudomonas infection [Unknown]
  - Oesophageal disorder [Unknown]
  - Urinary tract infection [Unknown]
  - Pneumoconiosis [Unknown]

NARRATIVE: CASE EVENT DATE: 201504
